FAERS Safety Report 9932691 (Version 1)
Quarter: 2014Q1

REPORT INFORMATION
  Report Type: Spontaneous
  Country: US (occurrence: US)
  Receive Date: 20140228
  Receipt Date: 20140228
  Transmission Date: 20141002
  Serious: No
  Sender: FDA-Public Use
  Company Number: US-ABBVIE-13P-163-1061338-00

PATIENT
  Age: 87 Year
  Sex: Male
  Weight: 63.11 kg

DRUGS (11)
  1. ANDROGEL [Suspect]
     Indication: BLOOD TESTOSTERONE DECREASED
     Dosage: 5 G PACKETS DAILY
     Dates: start: 2012
  2. FLUDROCORT [Concomitant]
     Indication: BALANCE DISORDER
  3. SYNTHROID [Concomitant]
     Indication: BLOOD THYROID STIMULATING HORMONE DECREASED
  4. CLOPIDIGREL [Concomitant]
     Indication: PRODUCT USED FOR UNKNOWN INDICATION
  5. MIODRINE [Concomitant]
     Indication: HYPERTENSION
  6. ATORVASTATIN [Concomitant]
     Indication: BLOOD CHOLESTEROL INCREASED
  7. ASPIRIN [Concomitant]
     Indication: PRODUCT USED FOR UNKNOWN INDICATION
  8. DORCOLAMIDE [Concomitant]
     Indication: INTRAOCULAR PRESSURE INCREASED
  9. XALATAN [Concomitant]
     Indication: EYE DISORDER
  10. NOVOLOG [Concomitant]
     Indication: DIABETES MELLITUS
  11. LANTUS [Concomitant]
     Indication: DIABETES MELLITUS

REACTIONS (1)
  - Application site rash [Not Recovered/Not Resolved]
